FAERS Safety Report 13749141 (Version 3)
Quarter: 2017Q3

REPORT INFORMATION
  Report Type: Report from Study
  Country: KR (occurrence: KR)
  Receive Date: 20170713
  Receipt Date: 20170724
  Transmission Date: 20171127
  Serious: Yes (Hospitalization)
  Sender: FDA-Public Use
  Company Number: KR-ROCHE-1939454

PATIENT
  Age: 36 Year
  Sex: Male
  Weight: 69 kg

DRUGS (17)
  1. ATEZOLIZUMAB. [Suspect]
     Active Substance: ATEZOLIZUMAB
     Indication: NON-SMALL CELL LUNG CANCER
     Dosage: DAY 1 OF EACH 21-DAY CYCLE.?DATE OF MOST RECENT DOSE PRIOR TO AE ONSET: 11/MAY/2017?DATE OF MOST REC
     Route: 042
     Dates: start: 20170124
  2. DENOGAN [Concomitant]
     Active Substance: PROPACETAMOL HYDROCHLORIDE
     Indication: PYREXIA
     Route: 065
     Dates: start: 20170525, end: 20170525
  3. ALMAGEL-F [Concomitant]
     Indication: ABDOMINAL DISTENSION
     Route: 065
     Dates: start: 20170330, end: 20170330
  4. ERDOS [Concomitant]
     Indication: COUGH
     Route: 065
     Dates: start: 20170124
  5. ARGAMATE [Concomitant]
     Active Substance: CALCIUM POLYSTYRENE SULFONATE
     Indication: HYPERKALAEMIA
     Route: 065
     Dates: start: 20170525, end: 20170525
  6. PROHANCE [Concomitant]
     Active Substance: GADOTERIDOL
     Route: 065
     Dates: start: 20170110, end: 20170414
  7. CEFIXIME. [Concomitant]
     Active Substance: CEFIXIME
     Indication: PYREXIA
     Route: 065
     Dates: start: 20170531, end: 20170604
  8. ADENOCOR [Concomitant]
     Indication: TACHYCARDIA
     Route: 065
     Dates: start: 20170525, end: 20170525
  9. LOBRIX [Concomitant]
     Route: 065
     Dates: start: 20170111
  10. TAZOPERAN [Concomitant]
     Indication: PYREXIA
     Route: 065
     Dates: start: 20170525, end: 20170531
  11. RABIET [Concomitant]
     Indication: ABDOMINAL DISTENSION
     Route: 065
     Dates: start: 20170307, end: 20170607
  12. CODAEWON FORTE [Concomitant]
     Indication: COUGH
     Route: 065
     Dates: start: 20170124
  13. GASTIIN CR [Concomitant]
     Indication: GASTRITIS
     Route: 065
     Dates: start: 20170124
  14. RABIET [Concomitant]
     Indication: DYSPEPSIA
     Route: 065
     Dates: start: 20170608
  15. MECOOL [Concomitant]
     Indication: HICCUPS
     Route: 065
     Dates: start: 20170528, end: 20170530
  16. CORDARONE [Concomitant]
     Active Substance: AMIODARONE HYDROCHLORIDE
     Indication: TACHYCARDIA
     Route: 065
     Dates: start: 20170525, end: 20170526
  17. OMAPONE PERI [Concomitant]
     Indication: DECREASED APPETITE
     Route: 065
     Dates: start: 20170524, end: 20170525

REACTIONS (2)
  - Pericardial effusion [Not Recovered/Not Resolved]
  - Dyspnoea [Recovered/Resolved]

NARRATIVE: CASE EVENT DATE: 20170510
